FAERS Safety Report 25953790 (Version 1)
Quarter: 2025Q4

REPORT INFORMATION
  Report Type: Spontaneous
  Country: US (occurrence: US)
  Receive Date: 20251023
  Receipt Date: 20251023
  Transmission Date: 20260117
  Serious: Yes (Other)
  Sender: NOVO NORDISK
  Company Number: US-NOVOPROD-1538662

PATIENT
  Age: 43 Year
  Sex: Male

DRUGS (1)
  1. NOVOLOG [Suspect]
     Active Substance: INSULIN ASPART
     Indication: Type 1 diabetes mellitus
     Dosage: 2-10 UNITS 3 TIMES A DAY
     Route: 058
     Dates: start: 2009

REACTIONS (3)
  - Renal failure [Unknown]
  - Blindness [Unknown]
  - Product storage error [Unknown]

NARRATIVE: CASE EVENT DATE: 20200214
